FAERS Safety Report 19681603 (Version 1)
Quarter: 2021Q3

REPORT INFORMATION
  Report Type: Spontaneous
  Country: US (occurrence: US)
  Receive Date: 20210810
  Receipt Date: 20210810
  Transmission Date: 20211014
  Serious: Yes (Hospitalization, Other)
  Sender: FDA-Public Use
  Company Number: US-ELI_LILLY_AND_COMPANY-US202107013131

PATIENT
  Sex: Male

DRUGS (2)
  1. TRULICITY [Suspect]
     Active Substance: DULAGLUTIDE
     Indication: TYPE 2 DIABETES MELLITUS
     Dosage: 4.5 MG, UNKNOWN
     Route: 058
  2. PHENTERMINE. [Concomitant]
     Active Substance: PHENTERMINE
     Indication: PRODUCT USED FOR UNKNOWN INDICATION

REACTIONS (7)
  - Skin laceration [Not Recovered/Not Resolved]
  - Road traffic accident [Unknown]
  - Diabetes mellitus inadequate control [Not Recovered/Not Resolved]
  - Cerebrovascular accident [Unknown]
  - Head injury [Unknown]
  - Localised infection [Not Recovered/Not Resolved]
  - Pericardial effusion [Unknown]
